FAERS Safety Report 6761368-4 (Version None)
Quarter: 2010Q2

REPORT INFORMATION
  Report Type: 
  Country: None (occurrence: None)
  Receive Date: 20100607
  Receipt Date: 20100521
  Transmission Date: 20101027
  Serious: Yes (Hospitalization)
  Sender: FDA-Public Use
  Company Number: AUR-APL-2010-01365

PATIENT
  Age: 54 Year
  Sex: Male
  Weight: 83 kg

DRUGS (9)
  1. METFORMIN [Suspect]
     Indication: TYPE 2 DIABETES MELLITUS
     Dosage: 500MG, QD, ORAL
     Route: 048
     Dates: start: 20080701, end: 20100422
  2. CRESTOR [Suspect]
     Indication: HYPERLIPIDAEMIA
     Dosage: 10MG, QD, ORAL
     Route: 048
     Dates: start: 20091008, end: 20100423
  3. JANUMET [Suspect]
     Indication: TYPE 2 DIABETES MELLITUS
     Dosage: 50/1000MG, BID, ORAL
     Route: 048
     Dates: start: 20090101, end: 20100423
  4. ACTOS [Suspect]
     Indication: TYPE 2 DIABETES MELLITUS
     Dosage: 15 MG, DAILY, ORAL
     Route: 048
     Dates: start: 20090713, end: 20100423
  5. OMACOR [Suspect]
     Indication: HYPERTRIGLYCERIDAEMIA
     Dosage: 1000MG,QID, ORAL
     Route: 048
     Dates: start: 20080701, end: 20100423
  6. ALLOPURINOL [Suspect]
     Indication: HYPERURICAEMIA
     Dosage: 150MG,DAILY, ORAL
     Route: 048
     Dates: end: 20100423
  7. RASILEZ [Suspect]
     Indication: HYPERTENSION
     Dosage: 150MG, DAILY, ORAL
     Route: 048
     Dates: start: 20070101, end: 20100423
  8. RAMIPRIL [Concomitant]
  9. METOHEXAL SUCC 95 [Concomitant]

REACTIONS (4)
  - ALANINE AMINOTRANSFERASE INCREASED [None]
  - ASPARTATE AMINOTRANSFERASE INCREASED [None]
  - FATIGUE [None]
  - GAMMA-GLUTAMYLTRANSFERASE INCREASED [None]
